FAERS Safety Report 15974373 (Version 1)
Quarter: 2019Q1

REPORT INFORMATION
  Report Type: Report from Study
  Country: None (occurrence: AT)
  Receive Date: 20190218
  Receipt Date: 20190218
  Transmission Date: 20190418
  Serious: Yes (Death)
  Sender: FDA-Public Use
  Company Number: AT-ABBVIE-19S-009-2670077-00

PATIENT
  Age: 77 Year
  Sex: Female

DRUGS (1)
  1. DUODOPA [Suspect]
     Active Substance: CARBIDOPA\LEVODOPA
     Indication: PARKINSON^S DISEASE
     Dosage: 16H THERAPY: MD: 6ML, CR DAYTIME: 4ML/H ED: 1.3ML
     Route: 050
     Dates: start: 20170620

REACTIONS (1)
  - Death [Fatal]

NARRATIVE: CASE EVENT DATE: 20190209
